FAERS Safety Report 13473809 (Version 1)
Quarter: 2017Q2

REPORT INFORMATION
  Report Type: Spontaneous
  Country: US (occurrence: US)
  Receive Date: 20170424
  Receipt Date: 20170424
  Transmission Date: 20170830
  Serious: Yes (Hospitalization)
  Sender: FDA-Public Use
  Company Number: US-BAXALTA-2017BLT003243

PATIENT
  Age: 18 Year
  Sex: Male
  Weight: 61 kg

DRUGS (3)
  1. ONCASPAR [Suspect]
     Active Substance: PEGASPARGASE
     Dosage: 4250 U, UNK
     Route: 042
     Dates: start: 201702
  2. ONCASPAR [Suspect]
     Active Substance: PEGASPARGASE
     Dosage: 4250 U, UNK
     Route: 042
     Dates: start: 20161223
  3. ONCASPAR [Suspect]
     Active Substance: PEGASPARGASE
     Indication: ACUTE LYMPHOCYTIC LEUKAEMIA
     Dosage: 4250 U, UNK
     Route: 042
     Dates: start: 20170327, end: 20170327

REACTIONS (3)
  - Pruritus generalised [Recovered/Resolved]
  - Throat tightness [Recovered/Resolved]
  - Rash [Recovered/Resolved]

NARRATIVE: CASE EVENT DATE: 20170327
